FAERS Safety Report 18355429 (Version 1)
Quarter: 2020Q4

REPORT INFORMATION
  Report Type: Spontaneous
  Country: US (occurrence: US)
  Receive Date: 20201006
  Receipt Date: 20201006
  Transmission Date: 20210114
  Serious: Yes (Other)
  Sender: FDA-Public Use
  Company Number: None

PATIENT
  Age: 44 Year
  Sex: Female
  Weight: 53.07 kg

DRUGS (2)
  1. HALOPERIDOL. [Suspect]
     Active Substance: HALOPERIDOL
     Route: 030
     Dates: start: 20200910, end: 20200925
  2. OLANZAPINE. [Suspect]
     Active Substance: OLANZAPINE
     Route: 048
     Dates: start: 20200914, end: 20200915

REACTIONS (2)
  - Therapy cessation [None]
  - Hyperprolactinaemia [None]

NARRATIVE: CASE EVENT DATE: 20200924
